FAERS Safety Report 10112196 (Version 1)
Quarter: 2014Q2

REPORT INFORMATION
  Report Type: Report from Study
  Country: US (occurrence: US)
  Receive Date: 20140425
  Receipt Date: 20140425
  Transmission Date: 20141212
  Serious: Yes (Death, Hospitalization)
  Sender: FDA-Public Use
  Company Number: US-EISAI INC-E7389-05015-CLI-US

PATIENT
  Age: 55 Year
  Sex: Female
  Weight: 81.6 kg

DRUGS (19)
  1. ERIBULIN [Suspect]
     Indication: BREAST CANCER METASTATIC
     Route: 041
     Dates: start: 20140312, end: 201403
  2. POL6326 [Suspect]
     Indication: BREAST CANCER METASTATIC
     Route: 041
     Dates: start: 20140311, end: 201403
  3. FENTANYL [Concomitant]
  4. HEPARIN [Concomitant]
  5. BENZONATATE [Concomitant]
  6. MORPHINE [Concomitant]
  7. NICOTINE PATCH [Concomitant]
  8. MAGNESIUM SULFATE [Concomitant]
  9. ALBUMIN [Concomitant]
  10. HALOPERIDOL [Concomitant]
  11. HYDROCODONE [Concomitant]
  12. POTASSIUM CHLORIDE [Concomitant]
  13. GABAPENTIN [Concomitant]
  14. VANCOMYCIN [Concomitant]
  15. CEFEPIME [Concomitant]
  16. AZITHROMYCIN [Concomitant]
  17. GENTAMICIN [Concomitant]
  18. OXYCODONE [Concomitant]
  19. HEPARIN [Concomitant]

REACTIONS (2)
  - Septic shock [Fatal]
  - Chest pain [Unknown]
